FAERS Safety Report 6391310-X (Version None)
Quarter: 2009Q4

REPORT INFORMATION
  Report Type: 
  Country: None (occurrence: None)
  Receive Date: 20091007
  Receipt Date: 20090930
  Transmission Date: 20100525
  Serious: No
  Sender: FDA-Public Use
  Company Number: US-B.I. PHARMACEUTICALS,INC./RIDGEFIELD-2009-BP-11460BP

PATIENT
  Sex: Female

DRUGS (5)
  1. MIRAPEX [Suspect]
     Indication: PARKINSON'S DISEASE
     Dosage: 3 MG
     Route: 048
     Dates: start: 20070101
  2. CARBADOPA [Concomitant]
     Indication: PARKINSON'S DISEASE
  3. ARTANE [Concomitant]
     Indication: PARKINSON'S DISEASE
  4. AZILECT [Concomitant]
     Indication: PARKINSON'S DISEASE
  5. LEXAPRO [Concomitant]
     Indication: DEPRESSION

REACTIONS (3)
  - INCREASED APPETITE [None]
  - VAGINAL HAEMORRHAGE [None]
  - WEIGHT INCREASED [None]
